FAERS Safety Report 6493418-7 (Version None)
Quarter: 2009Q4

REPORT INFORMATION
  Report Type: 
  Country: None (occurrence: None)
  Receive Date: 20091211
  Receipt Date: 20091211
  Transmission Date: 20100525
  Serious: Yes (Disabling)
  Sender: FDA-Public Use
  Company Number: None

PATIENT
  Age: 61 Year
  Sex: Male
  Weight: 92.9874 kg

DRUGS (6)
  1. METHADONE HCL [Suspect]
     Indication: PAIN
     Dosage: 1 DAILY ORAL
     Route: 048
     Dates: start: 20091124
  2. OXYCODONE HCL AND ACETAMINOPHEN [Concomitant]
  3. CLOPIDOGREL BISULFATE [Concomitant]
  4. LEVOTHYROXINE SODIUM [Concomitant]
  5. CLONAZEPAM [Concomitant]
  6. ABILIFY [Concomitant]

REACTIONS (2)
  - INSOMNIA [None]
  - PRURITUS [None]
